FAERS Safety Report 6170460-7 (Version None)
Quarter: 2009Q2

REPORT INFORMATION
  Report Type: 
  Country: None (occurrence: None)
  Receive Date: 20090428
  Receipt Date: 20090417
  Transmission Date: 20091009
  Serious: Yes (Other)
  Sender: FDA-Public Use
  Company Number: US-PFIZER INC-2009200407

PATIENT
  Sex: Male

DRUGS (1)
  1. SUTENT [Suspect]
     Dosage: 50 MG, 1X/DAY, 28 DAYS ON, 14 DAYS OFF

REACTIONS (2)
  - BLOOD PRESSURE INCREASED [None]
  - STAPHYLOCOCCAL INFECTION [None]
